FAERS Safety Report 6657212-6 (Version None)
Quarter: 2010Q1

REPORT INFORMATION
  Report Type: 
  Country: None (occurrence: None)
  Receive Date: 20100317
  Receipt Date: 20091211
  Transmission Date: 20100710
  Serious: No
  Sender: FDA-Public Use
  Company Number: DSA_41642_2009

PATIENT
  Sex: Female

DRUGS (5)
  1. XENAZINE [Suspect]
     Dosage: 25 MG BID ORAL, DF ORAL
     Route: 048
     Dates: start: 20090217, end: 20090905
  2. XENAZINE [Suspect]
     Dosage: 25 MG BID ORAL, DF ORAL
     Route: 048
     Dates: start: 20091001
  3. HALOPERIDOL [Concomitant]
  4. SIMVASTATIN [Concomitant]
  5. CITALOPRAM [Concomitant]

REACTIONS (4)
  - DRUG INEFFECTIVE [None]
  - FATIGUE [None]
  - POOR QUALITY SLEEP [None]
  - PRODUCT QUALITY ISSUE [None]
